FAERS Safety Report 9413249 (Version 2)
Quarter: 2013Q3

REPORT INFORMATION
  Report Type: Spontaneous
  Country: US (occurrence: US)
  Receive Date: 20130722
  Receipt Date: 20130927
  Transmission Date: 20140515
  Serious: Yes (Other)
  Sender: FDA-Public Use
  Company Number: US-TEVA-420079USA

PATIENT
  Age: 33 Year
  Sex: Female

DRUGS (3)
  1. PROAIR HFA [Suspect]
     Indication: RESPIRATORY DISORDER
     Dates: start: 20130713
  2. PROAIR HFA [Suspect]
     Indication: ANXIETY
  3. VALIUM [Concomitant]
     Indication: CARDIAC DISORDER

REACTIONS (3)
  - Chest discomfort [Recovered/Resolved]
  - Dyspnoea [Recovered/Resolved]
  - Drug ineffective [Unknown]
